FAERS Safety Report 20810018 (Version 4)
Quarter: 2025Q1

REPORT INFORMATION
  Report Type: Report from Study
  Country: CN (occurrence: CN)
  Receive Date: 20220510
  Receipt Date: 20250224
  Transmission Date: 20250409
  Serious: Yes (Hospitalization)
  Sender: DAIICHI
  Company Number: CN-DSJP-DSE-2022-115558

PATIENT
  Age: 69 Year
  Sex: Female
  Weight: 50 kg

DRUGS (8)
  1. EDOXABAN [Suspect]
     Active Substance: EDOXABAN
     Indication: Atrial fibrillation
     Dosage: 30 MG, QD
     Route: 065
     Dates: start: 20210629, end: 2021
  2. EDOXABAN [Suspect]
     Active Substance: EDOXABAN
     Dosage: 30 MG, QD
     Route: 065
     Dates: start: 2021, end: 2021
  3. EDOXABAN [Suspect]
     Active Substance: EDOXABAN
     Dosage: 30 MG, QD
     Route: 065
     Dates: start: 20210929, end: 2021
  4. EDOXABAN [Suspect]
     Active Substance: EDOXABAN
     Dosage: 30 MG, QD
     Route: 065
     Dates: start: 2021, end: 2021
  5. EDOXABAN [Suspect]
     Active Substance: EDOXABAN
     Dosage: 30 MG, QD
     Route: 065
     Dates: start: 20211228, end: 20220217
  6. EDOXABAN [Suspect]
     Active Substance: EDOXABAN
     Dosage: 30 MG, QD
     Route: 065
     Dates: start: 20220223, end: 20220416
  7. UNSPECIFIED INGREDIENT [Concomitant]
     Active Substance: UNSPECIFIED INGREDIENT
     Indication: Atrial fibrillation
     Dosage: UNK, QD
     Route: 065
     Dates: start: 2016
  8. RUN ZHONG [Concomitant]
     Indication: Chronic hepatitis B
     Dosage: 1 TABLET, QD
     Route: 048
     Dates: start: 2015

REACTIONS (4)
  - Drug-induced liver injury [Recovered/Resolved with Sequelae]
  - Liver function test abnormal [Recovering/Resolving]
  - Haematemesis [Recovered/Resolved]
  - Cholecystitis [Recovering/Resolving]

NARRATIVE: CASE EVENT DATE: 20220301
